FAERS Safety Report 10021067 (Version 1)
Quarter: 2014Q1

REPORT INFORMATION
  Report Type: Spontaneous
  Country: KR (occurrence: None)
  Receive Date: 20140313
  Receipt Date: 20140313
  Transmission Date: 20141002
  Serious: Yes (Hospitalization)
  Sender: FDA-Public Use
  Company Number: 2014PL000031

PATIENT
  Age: 48 Year
  Sex: Male

DRUGS (1)
  1. ALLOPURINO [Suspect]
     Indication: RENAL FAILURE CHRONIC

REACTIONS (1)
  - Drug reaction with eosinophilia and systemic symptoms [None]
